FAERS Safety Report 10478176 (Version 2)
Quarter: 2014Q4

REPORT INFORMATION
  Report Type: Spontaneous
  Country: US (occurrence: US)
  Receive Date: 20140926
  Receipt Date: 20141031
  Transmission Date: 20150528
  Serious: No
  Sender: FDA-Public Use
  Company Number: US-PFIZER INC-2014264031

PATIENT
  Age: 86 Year
  Sex: Female

DRUGS (1)
  1. PREMARIN [Suspect]
     Active Substance: ESTROGENS, CONJUGATED
     Dosage: UNK
     Route: 067

REACTIONS (8)
  - Vulvovaginal discomfort [Unknown]
  - Lichen sclerosus [Unknown]
  - Vaginal disorder [Unknown]
  - Wrong technique in drug usage process [Unknown]
  - Vaginal discharge [Unknown]
  - Genital tract inflammation [Unknown]
  - Vulvovaginal pain [Unknown]
  - Agitation [Unknown]

NARRATIVE: CASE EVENT DATE: 2014
